FAERS Safety Report 5908997-5 (Version None)
Quarter: 2008Q3

REPORT INFORMATION
  Report Type: 
  Country: None (occurrence: None)
  Receive Date: 20080930
  Receipt Date: 20080916
  Transmission Date: 20090109
  Serious: Yes (Hospitalization)
  Sender: FDA-Public Use
  Company Number: 034170

PATIENT
  Age: 17 Year
  Sex: Female

DRUGS (2)
  1. CLARAVIS [Suspect]
     Indication: ACNE
     Dosage: ORAL
     Route: 048
     Dates: start: 20080620
  2. ACCUTANE [Suspect]
     Dosage: ORAL
     Route: 048
     Dates: start: 20080615

REACTIONS (1)
  - GALLBLADDER DISORDER [None]
